FAERS Safety Report 16529757 (Version 1)
Quarter: 2019Q3

REPORT INFORMATION
  Report Type: Other
  Country: DE (occurrence: DE)
  Receive Date: 20190704
  Receipt Date: 20190704
  Transmission Date: 20191004
  Serious: No
  Sender: FDA-Public Use
  Company Number: DE-LUPIN PHARMACEUTICALS INC.-2019-01321

PATIENT
  Age: 52 Year
  Sex: Female
  Weight: 72 kg

DRUGS (3)
  1. FLUVASTATIN [Suspect]
     Active Substance: FLUVASTATIN SODIUM
     Indication: TYPE IIA HYPERLIPIDAEMIA
     Dosage: 20 MILLIGRAM
     Route: 065
     Dates: start: 20181028, end: 20181108
  2. SIMVASTATIN. [Suspect]
     Active Substance: SIMVASTATIN
     Indication: TYPE IIA HYPERLIPIDAEMIA
     Dosage: 10 MILLIGRAM
     Route: 065
     Dates: start: 20181001, end: 20181012
  3. ATORVASTATIN [Suspect]
     Active Substance: ATORVASTATIN
     Indication: TYPE IIA HYPERLIPIDAEMIA
     Dosage: 10 MILLIGRAM
     Route: 065
     Dates: start: 20180830, end: 20180906

REACTIONS (3)
  - Muscle discomfort [Recovered/Resolved]
  - Myalgia [Recovered/Resolved]
  - Musculoskeletal stiffness [Recovered/Resolved]
